FAERS Safety Report 12848451 (Version 1)
Quarter: 2016Q4

REPORT INFORMATION
  Report Type: Spontaneous
  Country: US (occurrence: US)
  Receive Date: 20161014
  Receipt Date: 20161014
  Transmission Date: 20170207
  Serious: No
  Sender: FDA-Public Use
  Company Number: US-JNJFOC-20160802089

PATIENT
  Sex: Female

DRUGS (1)
  1. TYLENOL REGULAR STRENGTH [Suspect]
     Active Substance: ACETAMINOPHEN
     Indication: ARTHRALGIA
     Dosage: 2 GELCAPS THEN NEXT TIME 1 GELCAP; AS NEEDED.
     Route: 048
     Dates: end: 20160731

REACTIONS (4)
  - Abdominal discomfort [Recovered/Resolved]
  - Product difficult to swallow [Unknown]
  - Dysgeusia [Recovered/Resolved]
  - Product size issue [Unknown]
